FAERS Safety Report 9409663 (Version 2)
Quarter: 2013Q3

REPORT INFORMATION
  Report Type: Spontaneous
  Country: US (occurrence: US)
  Receive Date: 20130719
  Receipt Date: 20130912
  Transmission Date: 20140515
  Serious: Yes (Other)
  Sender: FDA-Public Use
  Company Number: US-PFIZER INC-2013209195

PATIENT
  Age: 86 Year
  Sex: Male

DRUGS (4)
  1. SUTENT [Suspect]
     Dosage: 50 MG, CYCLIC (DAILY- ON 2 WEEKS OFF 1 WEEK)
     Dates: start: 20120910
  2. LESCOL [Concomitant]
     Dosage: UNK
  3. IMODIUM [Concomitant]
     Dosage: UNK
  4. ATENOLOL [Concomitant]
     Dosage: UNK

REACTIONS (11)
  - Tooth infection [Unknown]
  - Haematochezia [Unknown]
  - Platelet count decreased [Unknown]
  - Fall [Unknown]
  - Laceration [Unknown]
  - Pain [Unknown]
  - Diarrhoea [Unknown]
  - Haemorrhoids [Unknown]
  - Ageusia [Unknown]
  - Decreased appetite [Unknown]
  - Weight decreased [Unknown]
